FAERS Safety Report 19411129 (Version 2)
Quarter: 2021Q2

REPORT INFORMATION
  Report Type: Spontaneous
  Country: US (occurrence: US)
  Receive Date: 20210614
  Receipt Date: 20210614
  Transmission Date: 20210717
  Serious: No
  Sender: FDA-Public Use
  Company Number: US-GALDERMA-US2021011557

PATIENT
  Age: 61 Year
  Sex: Female

DRUGS (3)
  1. DIFFERIN GEL [Suspect]
     Active Substance: ADAPALENE
     Indication: ACNE
     Dosage: 0.1%
     Route: 061
     Dates: start: 202104, end: 202105
  2. CLEANSING PRODUCT [Concomitant]
     Indication: PRODUCT USED FOR UNKNOWN INDICATION
     Route: 065
  3. DIFFERIN GEL [Suspect]
     Active Substance: ADAPALENE
     Indication: SKIN DISCOLOURATION

REACTIONS (5)
  - Application site dryness [Recovered/Resolved]
  - Inappropriate schedule of product administration [Recovered/Resolved]
  - Application site exfoliation [Recovered/Resolved]
  - Overdose [Recovered/Resolved]
  - Product use in unapproved indication [Recovered/Resolved]

NARRATIVE: CASE EVENT DATE: 202104
